FAERS Safety Report 16036484 (Version 1)
Quarter: 2019Q1

REPORT INFORMATION
  Report Type: Spontaneous
  Country: US (occurrence: US)
  Receive Date: 20190305
  Receipt Date: 20190305
  Transmission Date: 20190418
  Serious: No
  Sender: FDA-Public Use
  Company Number: US-ALLERGAN-1903484US

PATIENT
  Sex: Female

DRUGS (1)
  1. ESTRACE [Suspect]
     Active Substance: ESTRADIOL
     Indication: PRODUCT USED FOR UNKNOWN INDICATION
     Dosage: UNK
     Route: 067

REACTIONS (8)
  - Discomfort [Unknown]
  - Vaginal discharge [Unknown]
  - Muscle spasms [Unknown]
  - Abdominal discomfort [Unknown]
  - Aggression [Unknown]
  - Premenstrual syndrome [Unknown]
  - Vulvovaginal pain [Unknown]
  - Nausea [Unknown]
